FAERS Safety Report 7682482-5 (Version None)
Quarter: 2011Q3

REPORT INFORMATION
  Report Type: 
  Country: None (occurrence: None)
  Receive Date: 20110815
  Receipt Date: 20110804
  Transmission Date: 20111222
  Serious: Yes (Other)
  Sender: FDA-Public Use
  Company Number: US-PERRIGO-11US006396

PATIENT
  Age: 59 Year
  Sex: Male
  Weight: 65.76 kg

DRUGS (3)
  1. PLAVIX [Concomitant]
     Indication: CARDIAC DISORDER
     Dosage: UNK
     Route: 065
  2. DIPHENHYDRAMINE HYDROCHLORIDE [Suspect]
     Indication: ARTHROPOD STING
     Dosage: 50 MG, EVERY 4 HOURS
     Route: 048
     Dates: start: 20110727, end: 20110728
  3. QUINIDINE HCL [Concomitant]
     Indication: BLOOD PRESSURE
     Dosage: UNK
     Route: 065

REACTIONS (2)
  - CONVULSION [None]
  - DRUG SCREEN POSITIVE [None]
